FAERS Safety Report 8496074-1 (Version None)
Quarter: 2012Q2

REPORT INFORMATION
  Report Type: 
  Country: None (occurrence: None)
  Receive Date: 20120405
  Receipt Date: 20100114
  Transmission Date: 20120825
  Serious: Yes (Hospitalization)
  Sender: FDA-Public Use
  Company Number: PHEH2010US00766

PATIENT
  Age: 45 Year
  Sex: Female

DRUGS (1)
  1. RECLAST [Suspect]
     Dosage: IV INFUSION
     Dates: start: 20100112

REACTIONS (3)
  - ARTHRALGIA [None]
  - JOINT SWELLING [None]
  - ABASIA [None]
